FAERS Safety Report 8859158 (Version 6)
Quarter: 2013Q2

REPORT INFORMATION
  Report Type: Spontaneous
  Country: US (occurrence: US)
  Receive Date: 20121024
  Receipt Date: 20130603
  Transmission Date: 20140414
  Serious: Yes (Hospitalization, Other)
  Sender: FDA-Public Use
  Company Number: US-009507513-1203USA00035

PATIENT
  Sex: Female
  Weight: 81.63 kg

DRUGS (5)
  1. FOSAMAX [Suspect]
     Indication: POSTMENOPAUSE
     Dosage: 70 MG, QW
     Route: 048
     Dates: start: 2001, end: 200611
  2. FOSAMAX [Suspect]
     Indication: PROPHYLAXIS
  3. FOSAMAX PLUS D [Suspect]
     Route: 048
  4. ACTONEL [Suspect]
     Dates: start: 200605, end: 200803
  5. THEOPHYLLINE [Concomitant]
     Indication: ASTHMA
     Dosage: UNK
     Dates: start: 2005, end: 2007

REACTIONS (33)
  - Femur fracture [Unknown]
  - Surgery [Unknown]
  - Removal of internal fixation [Unknown]
  - Open reduction of fracture [Unknown]
  - Surgery [Unknown]
  - Osteotomy [Unknown]
  - Non-Hodgkin^s lymphoma [Unknown]
  - Fracture nonunion [Unknown]
  - Transfusion [Unknown]
  - Device failure [Unknown]
  - Bone graft [Unknown]
  - Internal fixation of fracture [Unknown]
  - Medical device removal [Unknown]
  - Hepatocellular carcinoma [Unknown]
  - Breast prosthesis removal [Unknown]
  - Femur fracture [Unknown]
  - Medical device removal [Unknown]
  - Hernia repair [Unknown]
  - Hepatic cirrhosis [Unknown]
  - Fracture delayed union [Unknown]
  - Low turnover osteopathy [Unknown]
  - Hysterectomy [Unknown]
  - Spinal osteoarthritis [Unknown]
  - Fracture nonunion [Unknown]
  - Cervical spinal stenosis [Unknown]
  - Barrett^s oesophagus [Unknown]
  - Arthropathy [Unknown]
  - Deep vein thrombosis [Unknown]
  - Anxiety [Unknown]
  - Gastrooesophageal reflux disease [Unknown]
  - Dizziness [Unknown]
  - Back pain [Unknown]
  - Musculoskeletal chest pain [Unknown]
